FAERS Safety Report 4774948-2 (Version None)
Quarter: 2005Q3

REPORT INFORMATION
  Report Type: 
  Country: None (occurrence: None)
  Receive Date: 20050920
  Receipt Date: 20050906
  Transmission Date: 20060218
  Serious: Yes (Hospitalization)
  Sender: FDA-Public Use
  Company Number: 2005P1000385

PATIENT
  Age: 69 Year
  Sex: Female
  Weight: 86 kg

DRUGS (6)
  1. RETEVASE [Suspect]
     Indication: MYOCARDIAL INFARCTION
     Dosage: 5 IU;2X; IV
     Route: 042
     Dates: start: 20040702, end: 20040702
  2. ABCIXIMAB (ABCIXIMAB) [Suspect]
     Dosage: 10.8 ML; 1X; IV
  3. BETA BLOCKING AGENTS [Concomitant]
  4. ACE INHIBITOR NOS [Concomitant]
  5. CHOLESTEROL - AND RRIGLYCERIDE REDUCERS [Concomitant]
  6. WARFARIN SODIUM [Concomitant]

REACTIONS (1)
  - CORONARY ARTERY STENOSIS [None]
